FAERS Safety Report 16652550 (Version 4)
Quarter: 2020Q3

REPORT INFORMATION
  Report Type: Report from Study
  Country: CO (occurrence: CO)
  Receive Date: 20190731
  Receipt Date: 20200706
  Transmission Date: 20201102
  Serious: Yes (Hospitalization, Other)
  Sender: FDA-Public Use
  Company Number: CO-ASTELLAS-2019US030968

PATIENT
  Age: 5 Year
  Sex: Male
  Weight: 19 kg

DRUGS (13)
  1. TACROLIMUS. [Suspect]
     Active Substance: TACROLIMUS
     Route: 048
  2. URSACOL [Concomitant]
     Active Substance: URSODIOL
     Indication: CHOLANGITIS
     Route: 048
     Dates: start: 20141209
  3. CELLCEPT [Concomitant]
     Active Substance: MYCOPHENOLATE MOFETIL\MYCOPHENOLATE MOFETIL HYDROCHLORIDE
     Indication: LIVER TRANSPLANT
     Dosage: 1 DF, EVERY 12 HOURS 3 YEARS AGO
     Route: 048
  4. EVEROLIMUS. [Concomitant]
     Active Substance: EVEROLIMUS
     Indication: TRANSPLANT
  5. SULFAMETHOXAZOLE AND TRIMETHOPRIM [Concomitant]
     Active Substance: SULFAMETHOXAZOLE\TRIMETHOPRIM
     Indication: PRODUCT USED FOR UNKNOWN INDICATION
     Dosage: UNK UNK, ONCE DAILY (7.5 CC EVERY 24 HOURS)
     Route: 048
     Dates: start: 20141209
  6. DILTIAZEM. [Concomitant]
     Active Substance: DILTIAZEM
     Indication: BLOOD PRESSURE MEASUREMENT
     Dosage: (TABLET DILUED IN 4CC OF WATER (1CC OF THE DILUTION EVERY 8 HOURS))15 MG, EVERY 8 HOURS
     Route: 048
     Dates: start: 20141209
  7. PREDNISOLONE. [Concomitant]
     Active Substance: PREDNISOLONE
     Indication: IMMUNOSUPPRESSANT DRUG LEVEL
     Dosage: ONE AND HALF, ONCE DAILY
     Route: 048
     Dates: start: 20141209
  8. EVEROLIMUS. [Concomitant]
     Active Substance: EVEROLIMUS
     Indication: LIVER TRANSPLANT
     Route: 048
     Dates: start: 201904
  9. PREDNISOLONE. [Concomitant]
     Active Substance: PREDNISOLONE
     Route: 048
  10. CELLCEPT [Concomitant]
     Active Substance: MYCOPHENOLATE MOFETIL\MYCOPHENOLATE MOFETIL HYDROCHLORIDE
     Indication: MULTIPLE ORGAN DYSFUNCTION SYNDROME
     Dosage: 1 DF, EVERY 12 HOURS 2 OR 3 YEARS AFTER TRANSPLANT
     Route: 048
  11. MAGNESIUM SULFATE. [Concomitant]
     Active Substance: MAGNESIUM SULFATE
     Indication: ABDOMINAL DISCOMFORT
     Dosage: UNK UNK, ONCE DAILY (7 CC EVERY 24 HOURS)
     Route: 048
     Dates: start: 20141209
  12. ACETYLSALICYLIC ACID [Concomitant]
     Active Substance: ASPIRIN
     Indication: PRODUCT USED FOR UNKNOWN INDICATION
     Route: 048
     Dates: start: 20141209
  13. TACROLIMUS. [Suspect]
     Active Substance: TACROLIMUS
     Indication: LIVER TRANSPLANT
     Route: 048
     Dates: start: 20190509

REACTIONS (10)
  - Irritable bowel syndrome [Recovering/Resolving]
  - Gastritis [Recovering/Resolving]
  - Hernia [Unknown]
  - Haematoma [Recovering/Resolving]
  - Abdominal pain [Recovered/Resolved]
  - Abdominal pain [Recovering/Resolving]
  - Respiratory tract infection viral [Unknown]
  - Intestinal obstruction [Recovering/Resolving]
  - Gastric haemorrhage [Recovering/Resolving]
  - Product use in unapproved indication [Unknown]

NARRATIVE: CASE EVENT DATE: 20190509
